FAERS Safety Report 6800708-4 (Version None)
Quarter: 2010Q2

REPORT INFORMATION
  Report Type: 
  Country: None (occurrence: None)
  Receive Date: 20100629
  Receipt Date: 20100617
  Transmission Date: 20101027
  Serious: Yes (Death)
  Sender: FDA-Public Use
  Company Number: CA-JNJFOC-20091104841

PATIENT
  Sex: Male
  Weight: 81 kg

DRUGS (6)
  1. REMICADE [Suspect]
     Indication: CROHN'S DISEASE
     Route: 042
     Dates: start: 20000101, end: 20091101
  2. REMICADE [Suspect]
     Route: 042
     Dates: start: 20000101, end: 20091101
  3. PREDNISONE [Concomitant]
     Route: 048
  4. INSULINS + ANA.,INTERIM.-ACT.,COMB.W/FAST ACT [Concomitant]
     Route: 058
  5. CHOLESTEROL DRUGS [Concomitant]
     Indication: BLOOD CHOLESTEROL
     Route: 048
  6. CARDIOVASCULAR DRUGS [Concomitant]
     Route: 048

REACTIONS (1)
  - MYOCARDIAL INFARCTION [None]
